FAERS Safety Report 23868113 (Version 1)
Quarter: 2024Q2

REPORT INFORMATION
  Report Type: Spontaneous
  Country: CN (occurrence: CN)
  Receive Date: 20240517
  Receipt Date: 20240517
  Transmission Date: 20240716
  Serious: Yes (Other)
  Sender: FDA-Public Use
  Company Number: None

PATIENT
  Age: 73 Year
  Sex: Female
  Weight: 43 kg

DRUGS (2)
  1. MANNITOL [Suspect]
     Active Substance: MANNITOL
     Indication: Glaucoma
     Dosage: 250 ML (MILLILITRE) TWO TIMES A DAY, (DOSAGE FORM: INJECTION)
     Route: 041
     Dates: start: 20240426, end: 20240426
  2. MANNITOL [Suspect]
     Active Substance: MANNITOL
     Indication: Symptomatic treatment

REACTIONS (4)
  - Heart rate decreased [Recovered/Resolved]
  - Pruritus [Recovered/Resolved]
  - Discomfort [Unknown]
  - Hypotension [Recovered/Resolved]

NARRATIVE: CASE EVENT DATE: 20240426
